FAERS Safety Report 8430634 (Version 9)
Quarter: 2014Q2

REPORT INFORMATION
  Report Type: Report from Study
  Country: CA (occurrence: CA)
  Receive Date: 20120228
  Receipt Date: 20140425
  Transmission Date: 20141212
  Serious: Yes (Hospitalization, Other)
  Sender: FDA-Public Use
  Company Number: CA-ROCHE-1041161

PATIENT
  Age: 55 Year
  Sex: Female
  Weight: 86.2 kg

DRUGS (16)
  1. RITUXAN [Suspect]
     Indication: MICROSCOPIC POLYANGIITIS
     Dosage: PREVIOUS DOSE WAS ON 05/SEP/2013,?FREQUENCY: DAY 1 AND DAY 15.
     Route: 042
     Dates: start: 20120131
  2. RITUXAN [Suspect]
     Indication: HYPERSENSITIVITY VASCULITIS
  3. ACTONEL [Concomitant]
     Route: 048
     Dates: start: 20110119
  4. APO-FOLIC [Concomitant]
     Route: 048
     Dates: start: 20110223
  5. GABAPENTIN [Concomitant]
     Route: 048
     Dates: start: 20110920
  6. PREDNISONE [Concomitant]
     Route: 048
     Dates: start: 20111005
  7. DILAUDID [Concomitant]
     Route: 048
     Dates: start: 20111012
  8. ESTRACE [Concomitant]
     Route: 048
     Dates: start: 20111014
  9. HYDROMORPH CONTIN [Concomitant]
     Route: 048
     Dates: start: 20110923
  10. PARIET [Concomitant]
     Route: 048
     Dates: start: 20110930
  11. PROMETRIUM [Concomitant]
     Route: 048
     Dates: start: 20111123
  12. VITAMIN B12 [Concomitant]
     Dosage: 1000 MCG/ML
     Route: 058
     Dates: start: 20111110
  13. ACETAMINOPHEN [Concomitant]
     Indication: PREMEDICATION
     Route: 048
     Dates: start: 20120131, end: 20120131
  14. METHYLPREDNISOLONE [Concomitant]
     Indication: PREMEDICATION
     Route: 042
     Dates: start: 20120131, end: 20120131
  15. DIPHENHYDRAMINE HCL [Concomitant]
     Indication: PREMEDICATION
     Route: 048
     Dates: start: 20120131
  16. MORPHINE [Concomitant]

REACTIONS (16)
  - Fall [Unknown]
  - Compression fracture [Not Recovered/Not Resolved]
  - Pulmonary embolism [Unknown]
  - Vertigo [Unknown]
  - Loss of consciousness [Unknown]
  - Skin lesion [Not Recovered/Not Resolved]
  - Vein disorder [Unknown]
  - Vomiting [Recovered/Resolved]
  - Infected skin ulcer [Unknown]
  - Diarrhoea [Recovered/Resolved]
  - Sneezing [Unknown]
  - Skin ulcer [Not Recovered/Not Resolved]
  - Wound infection [Not Recovered/Not Resolved]
  - Rheumatoid arthritis [Unknown]
  - Off label use [Unknown]
  - Intervertebral disc disorder [Unknown]
